FAERS Safety Report 16571663 (Version 1)
Quarter: 2019Q3

REPORT INFORMATION
  Report Type: Spontaneous
  Country: US (occurrence: US)
  Receive Date: 20190713
  Receipt Date: 20190713
  Transmission Date: 20191004
  Serious: Yes (Other)
  Sender: FDA-Public Use
  Company Number: None

PATIENT
  Age: 63 Year
  Sex: Male
  Weight: 101.25 kg

DRUGS (11)
  1. RANITIDINE. [Concomitant]
     Active Substance: RANITIDINE
  2. HIP REPLACEMENT CANES AND / OR WALKER [Concomitant]
  3. MAGNESIUM [Concomitant]
     Active Substance: MAGNESIUM
  4. CELEBREX [Concomitant]
     Active Substance: CELECOXIB
  5. VITAMIN B12 [Concomitant]
     Active Substance: CYANOCOBALAMIN
  6. OXYCODONE/ACETAMINOPHEN 10/325 [Suspect]
     Active Substance: ACETAMINOPHEN\OXYCODONE HYDROCHLORIDE
     Indication: OSTEOARTHRITIS
     Dosage: ?          QUANTITY:180 TABLET(S);?
     Route: 048
     Dates: start: 20190713, end: 20190713
  7. PERCOCET [Concomitant]
     Active Substance: ACETAMINOPHEN\OXYCODONE HYDROCHLORIDE
  8. LEVOTHYROXINE. [Concomitant]
     Active Substance: LEVOTHYROXINE
  9. VITAMIN D3 [Concomitant]
     Active Substance: CHOLECALCIFEROL
  10. OXYCODONE/ACETAMINOPHEN 10/325 [Suspect]
     Active Substance: ACETAMINOPHEN\OXYCODONE HYDROCHLORIDE
     Indication: POLYARTHRITIS
     Dosage: ?          QUANTITY:180 TABLET(S);?
     Route: 048
     Dates: start: 20190713, end: 20190713
  11. LIDOCAINE/PRILOCAINE TOPICAL COMPOUND [Concomitant]

REACTIONS (11)
  - Dyspnoea [None]
  - Diarrhoea [None]
  - Fatigue [None]
  - Condition aggravated [None]
  - Product substitution issue [None]
  - Dizziness [None]
  - Hyperhidrosis [None]
  - Product formulation issue [None]
  - Pancreas divisum [None]
  - Confusional state [None]
  - Product quality issue [None]

NARRATIVE: CASE EVENT DATE: 20190713
